FAERS Safety Report 8434432-1 (Version None)
Quarter: 2012Q2

REPORT INFORMATION
  Report Type: 
  Country: None (occurrence: None)
  Receive Date: 20120614
  Receipt Date: 20120601
  Transmission Date: 20120825
  Serious: Yes (Hospitalization, Other)
  Sender: FDA-Public Use
  Company Number: US-BRISTOL-MYERS SQUIBB COMPANY-16684383

PATIENT
  Age: 33 Year
  Sex: Male

DRUGS (3)
  1. REMERON [Concomitant]
     Dates: start: 20111121
  2. COGENTIN [Concomitant]
     Dates: start: 20111202
  3. ARIPIPRAZOLE [Suspect]
     Indication: SCHIZOPHRENIA
     Route: 030
     Dates: start: 20120110

REACTIONS (1)
  - SCHIZOPHRENIA, PARANOID TYPE [None]
